FAERS Safety Report 7897615-5 (Version None)
Quarter: 2011Q4

REPORT INFORMATION
  Report Type: 
  Country: None (occurrence: None)
  Receive Date: 20111107
  Receipt Date: 20100617
  Transmission Date: 20120403
  Serious: No
  Sender: FDA-Public Use
  Company Number: US-BAYER-201026361NA

PATIENT
  Age: 61 Year
  Sex: Female

DRUGS (1)
  1. CLIMARA [Suspect]
     Indication: HOT FLUSH
     Dosage: 60 MCG/24HR, UNK
     Route: 062
     Dates: start: 19990101

REACTIONS (2)
  - NAUSEA [None]
  - VOMITING [None]
